FAERS Safety Report 23842875 (Version 2)
Quarter: 2024Q2

REPORT INFORMATION
  Report Type: Spontaneous
  Country: BR (occurrence: None)
  Receive Date: 20240510
  Receipt Date: 20240523
  Transmission Date: 20240715
  Serious: Yes (Life-Threatening)
  Sender: FDA-Public Use
  Company Number: 2024A110091

PATIENT
  Sex: Female

DRUGS (3)
  1. SYMBICORT [Suspect]
     Active Substance: BUDESONIDE\FORMOTEROL FUMARATE DIHYDRATE
     Indication: Asthma
     Dosage: 12/400MCG, 2 PUFFS IN THE MORNING AND 2 PUFFS AT NIGHT,TWO TIMES A DAY
     Route: 055
  2. SYMBICORT [Suspect]
     Active Substance: BUDESONIDE\FORMOTEROL FUMARATE DIHYDRATE
     Indication: Bronchitis
     Dosage: 12/400MCG, 2 PUFFS IN THE MORNING AND 2 PUFFS AT NIGHT,TWO TIMES A DAY
     Route: 055
  3. LOSARTAN [Concomitant]
     Active Substance: LOSARTAN
     Dosage: ONE PILL

REACTIONS (6)
  - Asthmatic crisis [Unknown]
  - Bronchitis [Unknown]
  - Palpitations [Unknown]
  - Drug ineffective [Unknown]
  - Device use issue [Unknown]
  - Product packaging quantity issue [Unknown]
